FAERS Safety Report 8969373 (Version 1)
Quarter: 2012Q4

REPORT INFORMATION
  Report Type: 
  Country: DK (occurrence: DK)
  Receive Date: 20121217
  Receipt Date: 20121217
  Transmission Date: 20130627
  Serious: Yes (Hospitalization)
  Sender: FDA-Public Use
  Company Number: PHHY2012DK114378

PATIENT
  Age: 38 Year
  Sex: Female
  Weight: 124 kg

DRUGS (4)
  1. SERTRALINE [Suspect]
     Indication: DEPRESSION
     Dosage: 150 mg, daily
     Dates: start: 20111010, end: 20111030
  2. ELTROXIN [Concomitant]
     Indication: MYXOEDEMA
     Dates: start: 200105
  3. BETOLVEX                                /DEN/ [Concomitant]
     Indication: VITAMIN B12 DEFICIENCY
     Dates: start: 201007
  4. SYMBICORT FORTE [Concomitant]
     Indication: ASTHMA
     Dates: start: 200903

REACTIONS (7)
  - Tonsillar disorder [Recovered/Resolved]
  - Pyrexia [Recovered/Resolved]
  - Eczema vesicular [Recovered/Resolved]
  - Oedema peripheral [Recovered/Resolved]
  - Urticaria [Recovered/Resolved]
  - Gait disturbance [Unknown]
  - Lymphadenopathy [Recovered/Resolved]
